FAERS Safety Report 4562672-0 (Version None)
Quarter: 2005Q1

REPORT INFORMATION
  Report Type: 
  Country: None (occurrence: None)
  Receive Date: 20050124
  Receipt Date: 20050113
  Transmission Date: 20050727
  Serious: Yes (Other)
  Sender: FDA-Public Use
  Company Number: 2005013418

PATIENT
  Age: 10 Year
  Sex: Male
  Weight: 27.5 kg

DRUGS (1)
  1. GENOTROPIN [Suspect]
     Indication: HYPOPITUITARISM
     Dosage: (29.4 I.U., 7 INJ/
     Dates: start: 20001004

REACTIONS (1)
  - FACIAL PARESIS [None]
